FAERS Safety Report 25110780 (Version 3)
Quarter: 2025Q3

REPORT INFORMATION
  Report Type: Spontaneous
  Country: CA (occurrence: CA)
  Receive Date: 20250324
  Receipt Date: 20250902
  Transmission Date: 20251020
  Serious: Yes (Death, Life-Threatening, Disabling, Other)
  Sender: Haleon PLC
  Company Number: CA-002147023-NVSC2021CA211434

PATIENT
  Age: 59 Year
  Sex: Female
  Weight: 68 kg

DRUGS (194)
  1. VOLTAREN [Suspect]
     Active Substance: DICLOFENAC SODIUM
     Indication: Product used for unknown indication
  2. VOLTAREN [Suspect]
     Active Substance: DICLOFENAC SODIUM
  3. DIPHENHYDRAMINE HYDROCHLORIDE [Suspect]
     Active Substance: DIPHENHYDRAMINE HYDROCHLORIDE
     Indication: Product used for unknown indication
  4. SOLU-MEDROL [Suspect]
     Active Substance: METHYLPREDNISOLONE SODIUM SUCCINATE
     Indication: Product used for unknown indication
  5. SOLU-MEDROL [Suspect]
     Active Substance: METHYLPREDNISOLONE SODIUM SUCCINATE
  6. INFLIXIMAB [Suspect]
     Active Substance: INFLIXIMAB
     Indication: Colitis ulcerative
  7. INFLIXIMAB [Suspect]
     Active Substance: INFLIXIMAB
     Indication: Crohn^s disease
     Route: 042
  8. INFLIXIMAB [Suspect]
     Active Substance: INFLIXIMAB
     Indication: Rheumatoid arthritis
     Route: 042
  9. LEFLUNOMIDE [Suspect]
     Active Substance: LEFLUNOMIDE
     Indication: Rheumatoid arthritis
  10. HYDROCORTISONE [Suspect]
     Active Substance: HYDROCORTISONE
     Indication: Product used for unknown indication
     Route: 048
  11. CETIRIZINE HYDROCHLORIDE [Suspect]
     Active Substance: CETIRIZINE HYDROCHLORIDE
     Indication: Rheumatoid arthritis
  12. CETIRIZINE HYDROCHLORIDE [Suspect]
     Active Substance: CETIRIZINE HYDROCHLORIDE
  13. ALENDRONATE SODIUM [Suspect]
     Active Substance: ALENDRONATE SODIUM
     Indication: Rheumatoid arthritis
  14. ALENDRONATE SODIUM [Suspect]
     Active Substance: ALENDRONATE SODIUM
  15. ALENDRONATE SODIUM [Suspect]
     Active Substance: ALENDRONATE SODIUM
     Route: 048
  16. XELJANZ [Suspect]
     Active Substance: TOFACITINIB CITRATE
     Indication: Rheumatoid arthritis
  17. XELJANZ [Suspect]
     Active Substance: TOFACITINIB CITRATE
     Route: 048
  18. XELJANZ [Suspect]
     Active Substance: TOFACITINIB CITRATE
     Dosage: 5 MG, QD, ROA: UNKNOWN
  19. XELJANZ [Suspect]
     Active Substance: TOFACITINIB CITRATE
  20. XELJANZ [Suspect]
     Active Substance: TOFACITINIB CITRATE
  21. XELJANZ [Suspect]
     Active Substance: TOFACITINIB CITRATE
  22. XELJANZ [Suspect]
     Active Substance: TOFACITINIB CITRATE
     Dosage: 5 MG, QD (1 EVERY 24 HOURS)
     Route: 048
  23. XELJANZ [Suspect]
     Active Substance: TOFACITINIB CITRATE
     Route: 048
  24. XELJANZ [Suspect]
     Active Substance: TOFACITINIB CITRATE
  25. XELJANZ [Suspect]
     Active Substance: TOFACITINIB CITRATE
     Dosage: 5 MG, QD, ROA: UNKNOWN
  26. ALENDRONATE SODIUM [Suspect]
     Active Substance: ALENDRONATE SODIUM
     Indication: Rheumatoid arthritis
  27. ALENDRONATE SODIUM [Suspect]
     Active Substance: ALENDRONATE SODIUM
     Route: 048
  28. ALENDRONATE SODIUM [Suspect]
     Active Substance: ALENDRONATE SODIUM
  29. ALENDRONATE SODIUM [Suspect]
     Active Substance: ALENDRONATE SODIUM
     Indication: Rheumatoid arthritis
  30. RITUXIMAB [Suspect]
     Active Substance: RITUXIMAB
     Indication: Rheumatoid arthritis
     Route: 058
  31. RITUXIMAB [Suspect]
     Active Substance: RITUXIMAB
  32. RITUXIMAB [Suspect]
     Active Substance: RITUXIMAB
  33. RITUXIMAB [Suspect]
     Active Substance: RITUXIMAB
  34. RITUXIMAB [Suspect]
     Active Substance: RITUXIMAB
  35. RITUXIMAB [Suspect]
     Active Substance: RITUXIMAB
  36. TOFACITINIB CITRATE [Suspect]
     Active Substance: TOFACITINIB CITRATE
     Indication: Rheumatoid arthritis
     Dosage: 5 MG, QD
     Route: 048
  37. HYDROXYCHLOROQUINE SULFATE [Suspect]
     Active Substance: HYDROXYCHLOROQUINE SULFATE
     Indication: Rheumatoid arthritis
  38. HYDROXYCHLOROQUINE SULFATE [Suspect]
     Active Substance: HYDROXYCHLOROQUINE SULFATE
  39. HYDROXYCHLOROQUINE SULFATE [Suspect]
     Active Substance: HYDROXYCHLOROQUINE SULFATE
  40. HYDROXYCHLOROQUINE SULFATE [Suspect]
     Active Substance: HYDROXYCHLOROQUINE SULFATE
  41. KEVZARA [Suspect]
     Active Substance: SARILUMAB
     Indication: Rheumatoid arthritis
  42. OTEZLA [Suspect]
     Active Substance: APREMILAST
     Indication: Rheumatoid arthritis
  43. ACETAMINOPHEN [Suspect]
     Active Substance: ACETAMINOPHEN
     Indication: Product used for unknown indication
  44. ACETAMINOPHEN [Suspect]
     Active Substance: ACETAMINOPHEN
  45. ENBREL [Suspect]
     Active Substance: ETANERCEPT
     Indication: Rheumatoid arthritis
     Dosage: 50 MG, QW, ROA: UNKNOWN
     Route: 058
  46. ENBREL [Suspect]
     Active Substance: ETANERCEPT
  47. ENBREL [Suspect]
     Active Substance: ETANERCEPT
  48. ENBREL [Suspect]
     Active Substance: ETANERCEPT
  49. PSEUDOEPHEDRINE HYDROCHLORIDE [Suspect]
     Active Substance: PSEUDOEPHEDRINE HYDROCHLORIDE
     Indication: Rheumatoid arthritis
  50. PSEUDOEPHEDRINE HYDROCHLORIDE [Suspect]
     Active Substance: PSEUDOEPHEDRINE HYDROCHLORIDE
  51. PSEUDOEPHEDRINE HYDROCHLORIDE [Suspect]
     Active Substance: PSEUDOEPHEDRINE HYDROCHLORIDE
     Route: 048
  52. GOLIMUMAB [Suspect]
     Active Substance: GOLIMUMAB
     Indication: Product used for unknown indication
  53. GOLIMUMAB [Suspect]
     Active Substance: GOLIMUMAB
  54. ACTEMRA [Suspect]
     Active Substance: TOCILIZUMAB
     Indication: Rheumatoid arthritis
     Route: 016
  55. ACTEMRA [Suspect]
     Active Substance: TOCILIZUMAB
  56. ACTEMRA [Suspect]
     Active Substance: TOCILIZUMAB
  57. ACTEMRA [Suspect]
     Active Substance: TOCILIZUMAB
  58. DICLOFENAC SODIUM [Suspect]
     Active Substance: DICLOFENAC SODIUM
     Indication: Product used for unknown indication
  59. DICLOFENAC SODIUM [Suspect]
     Active Substance: DICLOFENAC SODIUM
  60. DICLOFENAC SODIUM [Suspect]
     Active Substance: DICLOFENAC SODIUM
  61. SULFASALAZINE [Suspect]
     Active Substance: SULFASALAZINE
     Indication: Rheumatoid arthritis
  62. SULFASALAZINE [Suspect]
     Active Substance: SULFASALAZINE
     Route: 058
  63. SULFASALAZINE [Suspect]
     Active Substance: SULFASALAZINE
  64. SULFASALAZINE [Suspect]
     Active Substance: SULFASALAZINE
  65. SULFASALAZINE [Suspect]
     Active Substance: SULFASALAZINE
     Dosage: 1000 MG, QD (1 EVERY 24 HOURS)
     Route: 048
  66. SULFASALAZINE [Suspect]
     Active Substance: SULFASALAZINE
     Dosage: 500 MG, QD (1 EVERY 24 HOURS)
     Route: 048
  67. SULFASALAZINE [Suspect]
     Active Substance: SULFASALAZINE
  68. TOCILIZUMAB [Suspect]
     Active Substance: TOCILIZUMAB
     Indication: Rheumatoid arthritis
  69. ORENCIA [Suspect]
     Active Substance: ABATACEPT
     Indication: Rheumatoid arthritis
     Route: 058
  70. ORENCIA [Suspect]
     Active Substance: ABATACEPT
  71. ORENCIA [Suspect]
     Active Substance: ABATACEPT
  72. ORENCIA [Suspect]
     Active Substance: ABATACEPT
  73. ORENCIA [Suspect]
     Active Substance: ABATACEPT
  74. ORENCIA [Suspect]
     Active Substance: ABATACEPT
     Route: 042
  75. ARAVA [Suspect]
     Active Substance: LEFLUNOMIDE
     Indication: Rheumatoid arthritis
  76. ARAVA [Suspect]
     Active Substance: LEFLUNOMIDE
  77. ARAVA [Suspect]
     Active Substance: LEFLUNOMIDE
     Route: 048
  78. ARAVA [Suspect]
     Active Substance: LEFLUNOMIDE
  79. ARAVA [Suspect]
     Active Substance: LEFLUNOMIDE
  80. ARAVA [Suspect]
     Active Substance: LEFLUNOMIDE
     Route: 048
  81. ARAVA [Suspect]
     Active Substance: LEFLUNOMIDE
  82. ARAVA [Suspect]
     Active Substance: LEFLUNOMIDE
  83. STELARA [Suspect]
     Active Substance: USTEKINUMAB
     Indication: Rheumatoid arthritis
  84. STELARA [Suspect]
     Active Substance: USTEKINUMAB
     Route: 058
  85. STELARA [Suspect]
     Active Substance: USTEKINUMAB
  86. SIMPONI [Suspect]
     Active Substance: GOLIMUMAB
     Indication: Rheumatoid arthritis
     Route: 058
  87. SIMPONI [Suspect]
     Active Substance: GOLIMUMAB
  88. SIMPONI [Suspect]
     Active Substance: GOLIMUMAB
  89. SIMPONI [Suspect]
     Active Substance: GOLIMUMAB
  90. SIMPONI [Suspect]
     Active Substance: GOLIMUMAB
     Route: 058
  91. SIMPONI [Suspect]
     Active Substance: GOLIMUMAB
     Route: 058
  92. METHYLPREDNISOLONE SODIUM SUCCINATE [Suspect]
     Active Substance: METHYLPREDNISOLONE SODIUM SUCCINATE
     Indication: Product used for unknown indication
  93. LISINOPRIL [Concomitant]
     Active Substance: LISINOPRIL
     Indication: Product used for unknown indication
  94. PREDNISONE [Suspect]
     Active Substance: PREDNISONE
     Indication: Product used for unknown indication
  95. PREDNISONE [Suspect]
     Active Substance: PREDNISONE
     Route: 048
  96. PREDNISONE [Suspect]
     Active Substance: PREDNISONE
  97. PREDNISONE [Suspect]
     Active Substance: PREDNISONE
  98. PREDNISONE [Suspect]
     Active Substance: PREDNISONE
  99. PREDNISONE [Suspect]
     Active Substance: PREDNISONE
  100. PREDNISONE [Suspect]
     Active Substance: PREDNISONE
     Route: 048
  101. SARILUMAB [Suspect]
     Active Substance: SARILUMAB
     Indication: Rheumatoid arthritis
  102. CAFFEINE CITRATE [Concomitant]
     Active Substance: CAFFEINE CITRATE
     Indication: Product used for unknown indication
  103. CETIRIZINE HYDROCHLORIDE\PSEUDOEPHEDRINE HYDROCHLORIDE [Suspect]
     Active Substance: CETIRIZINE HYDROCHLORIDE\PSEUDOEPHEDRINE HYDROCHLORIDE
     Indication: Rheumatoid arthritis
  104. ADALIMUMAB [Suspect]
     Active Substance: ADALIMUMAB
     Indication: Rheumatoid arthritis
     Route: 058
  105. ADALIMUMAB [Suspect]
     Active Substance: ADALIMUMAB
     Route: 058
  106. ADALIMUMAB [Suspect]
     Active Substance: ADALIMUMAB
     Route: 058
  107. ADALIMUMAB [Suspect]
     Active Substance: ADALIMUMAB
  108. ADALIMUMAB [Suspect]
     Active Substance: ADALIMUMAB
  109. CORTISONE ACETATE [Suspect]
     Active Substance: CORTISONE ACETATE
     Indication: Product used for unknown indication
  110. CORTISONE ACETATE [Suspect]
     Active Substance: CORTISONE ACETATE
  111. CORTISONE ACETATE [Suspect]
     Active Substance: CORTISONE ACETATE
  112. CORTISONE ACETATE [Suspect]
     Active Substance: CORTISONE ACETATE
  113. CORTISONE ACETATE [Suspect]
     Active Substance: CORTISONE ACETATE
  114. CORTISONE ACETATE [Suspect]
     Active Substance: CORTISONE ACETATE
  115. ERELZI [Suspect]
     Active Substance: ETANERCEPT-SZZS
     Indication: Rheumatoid arthritis
     Route: 058
  116. ERELZI [Suspect]
     Active Substance: ETANERCEPT-SZZS
  117. ERELZI [Suspect]
     Active Substance: ETANERCEPT-SZZS
  118. CETIRIZINE HYDROCHLORIDE\PSEUDOEPHEDRINE HYDROCHLORIDE [Suspect]
     Active Substance: CETIRIZINE HYDROCHLORIDE\PSEUDOEPHEDRINE HYDROCHLORIDE
     Indication: Rheumatoid arthritis
  119. HYDROXYCHLOROQUINE [Suspect]
     Active Substance: HYDROXYCHLOROQUINE
     Indication: Rheumatoid arthritis
  120. HYDROXYCHLOROQUINE [Suspect]
     Active Substance: HYDROXYCHLOROQUINE
     Dosage: 40 MG, QD (1 EVERY 24 HOURS), ROA: UNKNOWN
  121. HYDROXYCHLOROQUINE [Suspect]
     Active Substance: HYDROXYCHLOROQUINE
     Dosage: 400 MG, QD (1 EVERY 24 HOURS),
     Route: 048
  122. HYDROXYCHLOROQUINE [Suspect]
     Active Substance: HYDROXYCHLOROQUINE
     Dosage: 400 MG, QD (1 EVERY 24 HOURS), ROA: UNKNOWN
  123. HYDROXYCHLOROQUINE [Suspect]
     Active Substance: HYDROXYCHLOROQUINE
  124. CIMZIA [Suspect]
     Active Substance: CERTOLIZUMAB PEGOL
     Indication: Rheumatoid arthritis
  125. CIMZIA [Suspect]
     Active Substance: CERTOLIZUMAB PEGOL
     Route: 058
  126. SULFASALAZINE [Concomitant]
     Active Substance: SULFASALAZINE
     Indication: Product used for unknown indication
  127. PREDNISONE [Suspect]
     Active Substance: PREDNISONE
     Indication: Product used for unknown indication
  128. PREDNISONE [Suspect]
     Active Substance: PREDNISONE
  129. PREDNISONE [Suspect]
     Active Substance: PREDNISONE
     Route: 048
  130. METHOTREXATE [Suspect]
     Active Substance: METHOTREXATE
     Indication: Rheumatoid arthritis
  131. METHOTREXATE [Suspect]
     Active Substance: METHOTREXATE
  132. METHOTREXATE [Suspect]
     Active Substance: METHOTREXATE
     Route: 016
  133. METHOTREXATE [Suspect]
     Active Substance: METHOTREXATE
     Dosage: 20 MG, QD (1 EVERY 24 HOURS),  ROA: UNKNOWN
  134. METHOTREXATE [Suspect]
     Active Substance: METHOTREXATE
     Dosage: 25 MG, QW
     Route: 058
  135. METHOTREXATE [Suspect]
     Active Substance: METHOTREXATE
  136. METHOTREXATE [Suspect]
     Active Substance: METHOTREXATE
  137. METHOTREXATE [Suspect]
     Active Substance: METHOTREXATE
  138. METHOTREXATE [Suspect]
     Active Substance: METHOTREXATE
  139. METHOTREXATE [Suspect]
     Active Substance: METHOTREXATE
     Dosage: 25 MG, QW
     Route: 048
  140. METHOTREXATE [Suspect]
     Active Substance: METHOTREXATE
  141. METHOTREXATE [Suspect]
     Active Substance: METHOTREXATE
  142. CALCIUM GLUCONATE [Suspect]
     Active Substance: CALCIUM GLUCONATE
     Indication: Product used for unknown indication
  143. CALCIUM GLUCONATE [Suspect]
     Active Substance: CALCIUM GLUCONATE
  144. FOLIC ACID [Suspect]
     Active Substance: FOLIC ACID
     Indication: Rheumatoid arthritis
     Route: 048
  145. FOLIC ACID [Suspect]
     Active Substance: FOLIC ACID
  146. FOLIC ACID [Suspect]
     Active Substance: FOLIC ACID
  147. FOLIC ACID [Suspect]
     Active Substance: FOLIC ACID
  148. FOLIC ACID [Suspect]
     Active Substance: FOLIC ACID
  149. FOLIC ACID [Suspect]
     Active Substance: FOLIC ACID
  150. FOLIC ACID [Suspect]
     Active Substance: FOLIC ACID
  151. FOLIC ACID [Suspect]
     Active Substance: FOLIC ACID
  152. HUMIRA [Suspect]
     Active Substance: ADALIMUMAB
     Indication: Rheumatoid arthritis
  153. HUMIRA [Suspect]
     Active Substance: ADALIMUMAB
     Route: 058
  154. HUMIRA [Suspect]
     Active Substance: ADALIMUMAB
     Route: 058
  155. HUMIRA [Suspect]
     Active Substance: ADALIMUMAB
  156. HUMIRA [Suspect]
     Active Substance: ADALIMUMAB
  157. HUMIRA [Suspect]
     Active Substance: ADALIMUMAB
  158. HUMIRA [Suspect]
     Active Substance: ADALIMUMAB
  159. FOSAMAX [Suspect]
     Active Substance: ALENDRONATE SODIUM
     Indication: Rheumatoid arthritis
     Route: 016
  160. FOSAMAX [Suspect]
     Active Substance: ALENDRONATE SODIUM
  161. FOSAMAX [Suspect]
     Active Substance: ALENDRONATE SODIUM
  162. FOSAMAX [Suspect]
     Active Substance: ALENDRONATE SODIUM
  163. FOSAMAX [Suspect]
     Active Substance: ALENDRONATE SODIUM
     Route: 048
  164. DESOXIMETASONE [Suspect]
     Active Substance: DESOXIMETASONE
     Indication: Rheumatoid arthritis
  165. DESOXIMETASONE [Suspect]
     Active Substance: DESOXIMETASONE
  166. DESOXIMETASONE [Suspect]
     Active Substance: DESOXIMETASONE
     Route: 058
  167. DESOXIMETASONE [Suspect]
     Active Substance: DESOXIMETASONE
     Route: 048
  168. DESOXIMETASONE [Suspect]
     Active Substance: DESOXIMETASONE
     Route: 067
  169. DESOXIMETASONE [Suspect]
     Active Substance: DESOXIMETASONE
  170. REMICADE [Suspect]
     Active Substance: INFLIXIMAB
     Indication: Rheumatoid arthritis
  171. REMICADE [Suspect]
     Active Substance: INFLIXIMAB
     Indication: Colitis ulcerative
  172. REMICADE [Suspect]
     Active Substance: INFLIXIMAB
     Indication: Crohn^s disease
  173. REMICADE [Suspect]
     Active Substance: INFLIXIMAB
  174. REMICADE [Suspect]
     Active Substance: INFLIXIMAB
  175. REMICADE [Suspect]
     Active Substance: INFLIXIMAB
  176. REMICADE [Suspect]
     Active Substance: INFLIXIMAB
     Route: 042
  177. VITAMIN D3 [Concomitant]
     Active Substance: CHOLECALCIFEROL
     Indication: Product used for unknown indication
  178. CODEINE [Concomitant]
     Active Substance: CODEINE
     Indication: Product used for unknown indication
  179. CODEINE [Concomitant]
     Active Substance: CODEINE
  180. ALENDRONIC ACID [Suspect]
     Active Substance: ALENDRONIC ACID
     Indication: Rheumatoid arthritis
     Route: 048
  181. ALENDRONIC ACID [Suspect]
     Active Substance: ALENDRONIC ACID
  182. ALENDRONIC ACID [Suspect]
     Active Substance: ALENDRONIC ACID
  183. PHTHALYLSULFATHIAZOLE [Suspect]
     Active Substance: PHTHALYLSULFATHIAZOLE
     Indication: Rheumatoid arthritis
  184. PHTHALYLSULFATHIAZOLE [Suspect]
     Active Substance: PHTHALYLSULFATHIAZOLE
  185. PHTHALYLSULFATHIAZOLE [Suspect]
     Active Substance: PHTHALYLSULFATHIAZOLE
  186. IBUPROFEN [Concomitant]
     Active Substance: IBUPROFEN
     Indication: Product used for unknown indication
  187. CORTISONE ACETATE [Suspect]
     Active Substance: CORTISONE ACETATE
     Indication: Product used for unknown indication
  188. CORTISONE ACETATE [Suspect]
     Active Substance: CORTISONE ACETATE
     Route: 048
  189. CORTISONE ACETATE [Suspect]
     Active Substance: CORTISONE ACETATE
  190. CORTISONE ACETATE [Suspect]
     Active Substance: CORTISONE ACETATE
  191. CORTISONE ACETATE [Suspect]
     Active Substance: CORTISONE ACETATE
  192. CORTISONE ACETATE [Suspect]
     Active Substance: CORTISONE ACETATE
     Route: 005
  193. CORTISONE ACETATE [Suspect]
     Active Substance: CORTISONE ACETATE
     Route: 048
  194. CORTISONE ACETATE [Suspect]
     Active Substance: CORTISONE ACETATE

REACTIONS (65)
  - Liver injury [Fatal]
  - Oedema peripheral [Fatal]
  - Blood cholesterol increased [Fatal]
  - Helicobacter infection [Fatal]
  - Glossodynia [Fatal]
  - Duodenal ulcer perforation [Fatal]
  - Asthma [Fatal]
  - Pericarditis [Fatal]
  - Musculoskeletal stiffness [Fatal]
  - Hypercholesterolaemia [Fatal]
  - Therapeutic product effect incomplete [Fatal]
  - Fibromyalgia [Fatal]
  - Adverse event [Fatal]
  - Malaise [Fatal]
  - Infusion related reaction [Fatal]
  - General physical health deterioration [Fatal]
  - Decreased appetite [Fatal]
  - Pain [Fatal]
  - Drug intolerance [Fatal]
  - Anti-cyclic citrullinated peptide antibody [Fatal]
  - Contraindicated product administered [Fatal]
  - Discomfort [Fatal]
  - Pain in extremity [Fatal]
  - Fatigue [Fatal]
  - Rheumatic fever [Fatal]
  - Diarrhoea [Fatal]
  - Red blood cell sedimentation rate increased [Fatal]
  - Arthropathy [Fatal]
  - Rheumatoid factor positive [Fatal]
  - Headache [Fatal]
  - Rheumatoid arthritis [Fatal]
  - Hypertension [Fatal]
  - Product use in unapproved indication [Fatal]
  - Abdominal discomfort [Fatal]
  - Lupus vulgaris [Fatal]
  - Rash [Fatal]
  - Off label use [Fatal]
  - Joint swelling [Fatal]
  - Product use issue [Fatal]
  - Drug ineffective [Fatal]
  - Arthralgia [Fatal]
  - Mobility decreased [Fatal]
  - Anti-cyclic citrullinated peptide antibody positive [Fatal]
  - Adverse drug reaction [Fatal]
  - Hand deformity [Fatal]
  - Visual impairment [Fatal]
  - Hepatic enzyme increased [Fatal]
  - Hypersensitivity [Fatal]
  - Retinitis [Fatal]
  - Injury [Fatal]
  - Wound [Fatal]
  - Pemphigus [Fatal]
  - Therapeutic product effect decreased [Fatal]
  - Maternal exposure during pregnancy [Fatal]
  - Type 2 diabetes mellitus [Fatal]
  - Blister [Fatal]
  - Exposure during pregnancy [Fatal]
  - Alopecia [Fatal]
  - Anxiety [Fatal]
  - Hypoaesthesia [Fatal]
  - Intentional product use issue [Fatal]
  - Psoriatic arthropathy [Fatal]
  - Systemic lupus erythematosus [Fatal]
  - Treatment failure [Fatal]
  - Arthritis [Fatal]
